FAERS Safety Report 24206665 (Version 1)
Quarter: 2024Q3

REPORT INFORMATION
  Report Type: Spontaneous
  Country: FR (occurrence: FR)
  Receive Date: 20240813
  Receipt Date: 20240813
  Transmission Date: 20241017
  Serious: Yes (Hospitalization)
  Sender: JAZZ
  Company Number: FR-JAZZ PHARMACEUTICALS-2023-FR-021406

PATIENT

DRUGS (1)
  1. VYXEOS [Suspect]
     Active Substance: CYTARABINE\DAUNORUBICIN
     Indication: Acute myeloid leukaemia
     Dosage: 44/100 MILLIGRAM
     Route: 042
     Dates: start: 20230930, end: 20231002

REACTIONS (1)
  - Incorrect dose administered [Recovered/Resolved]
